FAERS Safety Report 10283313 (Version 2)
Quarter: 2014Q3

REPORT INFORMATION
  Report Type: Spontaneous
  Country: FR (occurrence: FR)
  Receive Date: 20140708
  Receipt Date: 20140828
  Transmission Date: 20150326
  Serious: Yes (Hospitalization)
  Sender: FDA-Public Use
  Company Number: FR-JNJFOC-20140703212

PATIENT
  Age: 61 Year
  Sex: Female
  Weight: 45 kg

DRUGS (1)
  1. SIMPONI [Suspect]
     Active Substance: GOLIMUMAB
     Indication: RHEUMATOID ARTHRITIS
     Route: 058
     Dates: start: 2010, end: 2014

REACTIONS (2)
  - Rheumatoid vasculitis [Unknown]
  - Encephalitis [Recovered/Resolved]

NARRATIVE: CASE EVENT DATE: 201406
